FAERS Safety Report 7118660-3 (Version None)
Quarter: 2010Q4

REPORT INFORMATION
  Report Type: 
  Country: None (occurrence: None)
  Receive Date: 20101123
  Receipt Date: 20101102
  Transmission Date: 20110411
  Serious: Yes (Hospitalization, Other)
  Sender: FDA-Public Use
  Company Number: US-BAYER-201031407NA

PATIENT
  Age: 28 Year
  Sex: Female
  Weight: 120 kg

DRUGS (6)
  1. YAZ [Suspect]
     Indication: ORAL CONTRACEPTION
     Route: 048
     Dates: start: 20070718, end: 20081001
  2. ATENOLOL [Concomitant]
     Indication: HYPERTENSION
     Route: 048
     Dates: start: 20060101
  3. ACIPHEX [Concomitant]
     Indication: GASTROOESOPHAGEAL REFLUX DISEASE
     Route: 048
     Dates: start: 20070901
  4. OXYBUTYNIN [Concomitant]
     Indication: URINARY INCONTINENCE
     Route: 048
     Dates: start: 20060501
  5. ENABLEX [Concomitant]
     Indication: URINARY INCONTINENCE
     Route: 048
  6. EFFEXOR [Concomitant]
     Indication: DEPRESSION

REACTIONS (6)
  - ABDOMINAL PAIN UPPER [None]
  - CHOLECYSTITIS [None]
  - DIARRHOEA [None]
  - GALLBLADDER CHOLESTEROLOSIS [None]
  - NAUSEA [None]
  - VOMITING [None]
